FAERS Safety Report 10428025 (Version 1)
Quarter: 2014Q3

REPORT INFORMATION
  Report Type: Spontaneous
  Country: US (occurrence: None)
  Receive Date: 20140725
  Receipt Date: 20140725
  Transmission Date: 20150326
  Serious: No
  Sender: FDA-Public Use
  Company Number: AP356-00810-SPO-US

PATIENT
  Age: 48 Year
  Sex: Female

DRUGS (3)
  1. CELEBREX(CELECOXIB) [Concomitant]
  2. BELVIQ [Suspect]
     Active Substance: LORCASERIN HYDROCHLORIDE
     Indication: OVERWEIGHT
     Route: 048
     Dates: start: 20140524, end: 20140526
  3. MOBIC (MELOXICAM ) [Concomitant]

REACTIONS (5)
  - Lethargy [None]
  - Headache [None]
  - Constipation [None]
  - Nausea [None]
  - Dehydration [None]

NARRATIVE: CASE EVENT DATE: 20140524
